FAERS Safety Report 5291906-2 (Version None)
Quarter: 2007Q2

REPORT INFORMATION
  Report Type: 
  Country: None (occurrence: None)
  Receive Date: 20070406
  Receipt Date: 20070406
  Transmission Date: 20071010
  Serious: Yes (Life-Threatening, Hospitalization)
  Sender: FDA-Public Use
  Company Number: None

PATIENT
  Sex: Female
  Weight: 58.9676 kg

DRUGS (2)
  1. AUGMENTIN '875' [Suspect]
     Indication: SINUSITIS
     Dosage: 875 1 BID X 7D
     Dates: start: 20070109
  2. LOTREL [Concomitant]

REACTIONS (2)
  - HEPATITIS CHOLESTATIC [None]
  - PRURITUS [None]
